FAERS Safety Report 5917353-5 (Version None)
Quarter: 2008Q4

REPORT INFORMATION
  Report Type: 
  Country: None (occurrence: None)
  Receive Date: 20081014
  Receipt Date: 20081002
  Transmission Date: 20090506
  Serious: Yes (Other)
  Sender: FDA-Public Use
  Company Number: US-AMGEN-US308913

PATIENT
  Sex: Female
  Weight: 58 kg

DRUGS (9)
  1. ARANESP [Suspect]
     Indication: DIALYSIS
     Route: 058
     Dates: start: 20040901
  2. NIFEDIPINE [Suspect]
     Route: 048
  3. NEXIUM [Suspect]
     Route: 048
  4. ENALAPRIL MALEATE [Suspect]
     Route: 048
  5. FOLIC ACID [Concomitant]
     Route: 048
  6. CLONIDINE [Concomitant]
     Route: 048
  7. ZEMPLAR [Concomitant]
     Route: 048
  8. PHOSLO [Concomitant]
  9. NADOLOL [Concomitant]
     Route: 048

REACTIONS (2)
  - APLASTIC ANAEMIA [None]
  - HYPERTENSION [None]
